FAERS Safety Report 16476550 (Version 3)
Quarter: 2019Q3

REPORT INFORMATION
  Report Type: Report from Study
  Country: DE (occurrence: DE)
  Receive Date: 20190626
  Receipt Date: 20190809
  Transmission Date: 20191004
  Serious: Yes (Hospitalization)
  Sender: FDA-Public Use
  Company Number: DE-TEVA-2019-DE-1066167

PATIENT
  Age: 28 Year
  Sex: Female
  Weight: 85 kg

DRUGS (2)
  1. COPAXONE [Suspect]
     Active Substance: GLATIRAMER ACETATE
     Indication: MULTIPLE SCLEROSIS
     Route: 058
     Dates: start: 20160501, end: 20190616
  2. IBUPROFEN 800 MG [Suspect]
     Active Substance: IBUPROFEN
     Route: 065
     Dates: start: 20190616

REACTIONS (6)
  - Hyperventilation [Recovered/Resolved]
  - Pain in extremity [Unknown]
  - Hyperhidrosis [Recovered/Resolved]
  - Dyspnoea [Recovered/Resolved]
  - Palpitations [Recovered/Resolved]
  - Dizziness [Recovered/Resolved]

NARRATIVE: CASE EVENT DATE: 201906
